FAERS Safety Report 15535059 (Version 2)
Quarter: 2018Q4

REPORT INFORMATION
  Report Type: Report from Study
  Country: AU (occurrence: AU)
  Receive Date: 20181022
  Receipt Date: 20181221
  Transmission Date: 20190205
  Serious: Yes (Hospitalization, Other)
  Sender: FDA-Public Use
  Company Number: AU-ROCHE-2200791

PATIENT
  Age: 42 Year
  Sex: Female

DRUGS (1)
  1. OCREVUS [Suspect]
     Active Substance: OCRELIZUMAB
     Indication: RELAPSING-REMITTING MULTIPLE SCLEROSIS
     Route: 041
     Dates: start: 20180307

REACTIONS (6)
  - B-lymphocyte count decreased [Not Recovered/Not Resolved]
  - Skin infection [Recovering/Resolving]
  - Kidney infection [Recovered/Resolved]
  - Pharyngitis [Recovering/Resolving]
  - Urinary tract infection [Recovering/Resolving]
  - Molluscum contagiosum [Not Recovered/Not Resolved]

NARRATIVE: CASE EVENT DATE: 201805
